FAERS Safety Report 7579727-9 (Version None)
Quarter: 2011Q2

REPORT INFORMATION
  Report Type: 
  Country: None (occurrence: None)
  Receive Date: 20110629
  Receipt Date: 20110620
  Transmission Date: 20111010
  Serious: Yes (Hospitalization)
  Sender: FDA-Public Use
  Company Number: US-ASTELLAS-2011US003192

PATIENT
  Age: 51 Year
  Sex: Male

DRUGS (9)
  1. PROGRAF [Suspect]
     Indication: LIVER TRANSPLANT
     Dosage: 2 MG, BID
     Route: 048
  2. METHYLPREDNISOLONE [Concomitant]
     Dosage: 20 MG, UID/QD
     Route: 042
  3. PREDNISONE [Concomitant]
     Indication: LIVER TRANSPLANT
     Dosage: 20 MG, UID/QD
     Route: 048
  4. PROGRAF [Suspect]
     Dosage: 2 MG AM, 3 MG PM
     Route: 048
  5. PROGRAF [Suspect]
     Dosage: 3 MG AM, 4 MG PM
     Route: 048
  6. METHYLPREDNISOLONE [Concomitant]
     Indication: LIVER TRANSPLANT
     Dosage: 500 MG, TOTAL DOSE
     Route: 042
  7. PROGRAF [Suspect]
     Dosage: 4 MG, BID
     Route: 048
  8. PROGRAF [Suspect]
     Dosage: 3 MG, BID
     Route: 048
  9. MYCOPHENOLATE MEFETIL [Concomitant]
     Indication: LIVER TRANSPLANT
     Dosage: 1000 MG, BID
     Route: 042

REACTIONS (3)
  - RESPIRATORY FAILURE [None]
  - OSMOTIC DEMYELINATION SYNDROME [None]
  - SEPSIS [None]
